FAERS Safety Report 17203358 (Version 1)
Quarter: 2019Q4

REPORT INFORMATION
  Report Type: Report from Study
  Country: IN (occurrence: IN)
  Receive Date: 20191226
  Receipt Date: 20191226
  Transmission Date: 20200122
  Serious: Yes (Death)
  Sender: FDA-Public Use
  Company Number: IN-ASTRAZENECA-2019SF86245

PATIENT
  Age: 78 Year
  Sex: Male

DRUGS (5)
  1. PAN 40 [Concomitant]
     Indication: GASTRITIS
     Route: 048
     Dates: start: 20191118, end: 20191126
  2. SYRUP MUCAIN [Concomitant]
     Indication: HYPERCHLORHYDRIA
     Route: 048
     Dates: start: 20191118, end: 20191126
  3. BRILINTA [Suspect]
     Active Substance: TICAGRELOR
     Indication: CARDIAC DISORDER
     Route: 048
     Dates: start: 20191118, end: 20191126
  4. CARDACE-METO [Concomitant]
     Indication: HYPERTENSION
     Route: 048
     Dates: start: 20191118, end: 20191126
  5. CRESTOR [Concomitant]
     Active Substance: ROSUVASTATIN CALCIUM
     Indication: BLOOD CHOLESTEROL
     Route: 048
     Dates: start: 20191118, end: 20191126

REACTIONS (1)
  - Death [Fatal]

NARRATIVE: CASE EVENT DATE: 20191126
